FAERS Safety Report 7225683-2 (Version None)
Quarter: 2011Q1

REPORT INFORMATION
  Report Type: 
  Country: None (occurrence: None)
  Receive Date: 20110113
  Receipt Date: 20101208
  Transmission Date: 20110831
  Serious: No
  Sender: FDA-Public Use
  Company Number: US-NOVEN-10US001425

PATIENT
  Sex: Female

DRUGS (2)
  1. FENTANYL-100 [Suspect]
     Indication: LUMBAR SPINAL STENOSIS
     Dosage: 25 UG/HR, Q72HOURS
     Route: 062
     Dates: start: 20100501
  2. PERCOCET [Concomitant]
     Indication: BREAKTHROUGH PAIN
     Dosage: UNK
     Route: 048

REACTIONS (5)
  - FEELING COLD [None]
  - DRUG ADMINISTRATION ERROR [None]
  - INADEQUATE ANALGESIA [None]
  - CHILLS [None]
  - PRODUCT QUALITY ISSUE [None]
